FAERS Safety Report 18223798 (Version 1)
Quarter: 2020Q3

REPORT INFORMATION
  Report Type: Spontaneous
  Country: ES (occurrence: ES)
  Receive Date: 20200902
  Receipt Date: 20200902
  Transmission Date: 20201103
  Serious: Yes (Other)
  Sender: FDA-Public Use
  Company Number: NVSC2020ES240414

PATIENT
  Age: 24 Year
  Sex: Female

DRUGS (3)
  1. PREDNISONE. [Suspect]
     Active Substance: PREDNISONE
     Indication: OPTIC NEURITIS
     Dosage: 60 MG, QD
     Route: 048
  2. METHOTREXATE. [Suspect]
     Active Substance: METHOTREXATE
     Indication: OPTIC NEURITIS
     Dosage: 22.5 MG, QW (SUBCUTANEOUS OR PER ORAL)
     Route: 065
  3. AZATHIOPRINE. [Suspect]
     Active Substance: AZATHIOPRINE
     Indication: OPTIC NEURITIS
     Dosage: 100 MG, QD
     Route: 048

REACTIONS (2)
  - Optic neuritis [Unknown]
  - Product use in unapproved indication [Unknown]
